FAERS Safety Report 25863804 (Version 2)
Quarter: 2025Q4

REPORT INFORMATION
  Report Type: Spontaneous
  Country: US (occurrence: US)
  Receive Date: 20250930
  Receipt Date: 20251014
  Transmission Date: 20260117
  Serious: Yes (Hospitalization)
  Sender: FRESENIUS MEDICAL CARE
  Company Number: US-FMCRTG-FMC-2509-001505

PATIENT
  Age: 74 Year
  Sex: Male

DRUGS (20)
  1. DELFLEX [Suspect]
     Active Substance: CALCIUM CHLORIDE\DEXTROSE\MAGNESIUM CHLORIDE\SODIUM CHLORIDE\SODIUM LACTATE
     Indication: End stage renal disease
     Route: 033
  2. HUMULIN R [Concomitant]
     Active Substance: INSULIN HUMAN
  3. TOUJEO MAX [Concomitant]
     Active Substance: INSULIN GLARGINE
  4. APIXABAN [Concomitant]
     Active Substance: APIXABAN
  5. BUDESONIDE [Concomitant]
     Active Substance: BUDESONIDE
  6. SERTRALINE [Concomitant]
     Active Substance: SERTRALINE HYDROCHLORIDE
  7. ATORVASTATIN [Concomitant]
     Active Substance: ATORVASTATIN
  8. BUMETANIDE [Concomitant]
     Active Substance: BUMETANIDE
  9. CALCITRIOL [Concomitant]
     Active Substance: CALCITRIOL
  10. CLOPIDOGREL [Concomitant]
     Active Substance: CLOPIDOGREL BISULFATE
  11. DICLOFENAC SODIUM [Concomitant]
     Active Substance: DICLOFENAC SODIUM
  12. EZETIMIBE [Concomitant]
     Active Substance: EZETIMIBE
  13. FLUTICASONE [Concomitant]
     Active Substance: FLUTICASONE
  14. HYDROXYZINE HYDROCHLORIDE [Concomitant]
     Active Substance: HYDROXYZINE HYDROCHLORIDE
  15. ALBUTEROL\IPRATROPIUM [Concomitant]
     Active Substance: ALBUTEROL\IPRATROPIUM
  16. MIDODRINE [Concomitant]
     Active Substance: MIDODRINE
  17. ONDANSETRON [Concomitant]
     Active Substance: ONDANSETRON
  18. PANTOPRAZOLE [Concomitant]
     Active Substance: PANTOPRAZOLE
  19. ASPIRIN [Concomitant]
     Active Substance: ASPIRIN
  20. ISOSORBIDE MONONITRATE [Concomitant]
     Active Substance: ISOSORBIDE MONONITRATE

REACTIONS (1)
  - Sepsis [Unknown]
